FAERS Safety Report 25427497 (Version 1)
Quarter: 2025Q2

REPORT INFORMATION
  Report Type: Spontaneous
  Country: SE (occurrence: SE)
  Receive Date: 20250612
  Receipt Date: 20250612
  Transmission Date: 20250716
  Serious: Yes (Hospitalization)
  Sender: ACCORD
  Company Number: None

PATIENT
  Age: 70 Year
  Sex: Male

DRUGS (10)
  1. ROSUVASTATIN CALCIUM [Suspect]
     Active Substance: ROSUVASTATIN CALCIUM
     Indication: Hyperlipidaemia
     Dosage: STRENGTH: ROSUVASTATIN CALCIUM 41.68 MG AND ROSUVASTATIN 40 MG
     Dates: start: 20250412, end: 20250517
  2. ASPIRIN [Concomitant]
     Active Substance: ASPIRIN
  3. METOPROLOL [Concomitant]
     Active Substance: METOPROLOL
  4. FRAGMIN [Concomitant]
     Active Substance: DALTEPARIN SODIUM
  5. DAPAGLIFLOZIN [Concomitant]
     Active Substance: DAPAGLIFLOZIN
  6. NITROLINGUAL [Concomitant]
     Active Substance: NITROGLYCERIN
  7. RAMIPRIL [Concomitant]
     Active Substance: RAMIPRIL
  8. RAMIPRIL [Concomitant]
     Active Substance: RAMIPRIL
  9. TADALAFIL [Concomitant]
     Active Substance: TADALAFIL
  10. WARFARIN SODIUM [Concomitant]
     Active Substance: WARFARIN SODIUM

REACTIONS (6)
  - Transaminases increased [Unknown]
  - International normalised ratio increased [Unknown]
  - Chest pain [Recovering/Resolving]
  - Choking sensation [Recovering/Resolving]
  - Dizziness [Recovering/Resolving]
  - Nausea [Recovering/Resolving]

NARRATIVE: CASE EVENT DATE: 20250501
